FAERS Safety Report 4409769-3 (Version None)
Quarter: 2004Q3

REPORT INFORMATION
  Report Type: 
  Country: None (occurrence: None)
  Receive Date: 20040723
  Receipt Date: 20040707
  Transmission Date: 20050211
  Serious: Yes (Other)
  Sender: FDA-Public Use
  Company Number: US-SHR-03-015223

PATIENT
  Age: 35 Year
  Sex: Female
  Weight: 83.9 kg

DRUGS (1)
  1. YASMIN [Suspect]
     Indication: ORAL CONTRACEPTION
     Dosage: 1 TAB(S), 1X/DAY, ORAL
     Route: 048
     Dates: start: 20030301, end: 20030901

REACTIONS (8)
  - ANXIETY [None]
  - DEPRESSION [None]
  - HOT FLUSH [None]
  - INSOMNIA [None]
  - METRORRHAGIA [None]
  - MOOD ALTERED [None]
  - PALPITATIONS [None]
  - THYROID CYST [None]
